FAERS Safety Report 15230661 (Version 1)
Quarter: 2018Q3

REPORT INFORMATION
  Report Type: Spontaneous
  Country: US (occurrence: US)
  Receive Date: 20180802
  Receipt Date: 20180802
  Transmission Date: 20181010
  Serious: No
  Sender: FDA-Public Use
  Company Number: US-SA-2018SA208396

PATIENT
  Age: 64 Year
  Sex: Female

DRUGS (19)
  1. LISINOPRIL. [Concomitant]
     Active Substance: LISINOPRIL
  2. TRIMPEX [TRIMETHOPRIM HYDROCHLORIDE] [Concomitant]
  3. PLAVIX [Concomitant]
     Active Substance: CLOPIDOGREL BISULFATE
  4. PROTONIX [OMEPRAZOLE] [Concomitant]
  5. ISTALOL [Concomitant]
     Active Substance: TIMOLOL MALEATE
  6. AUGMENTIN [AMOXICILLIN;CLAVULANIC ACID] [Concomitant]
  7. INSULIN LISPRO [Concomitant]
     Active Substance: INSULIN LISPRO
  8. ECOTRIN [Concomitant]
     Active Substance: ASPIRIN
  9. ULTRAM [PARACETAMOL;TRAMADOL HYDROCHLORIDE] [Concomitant]
  10. KENALOG [TRIAMCINOLONE ACETONIDE] [Concomitant]
  11. VITAMIN B6 [Concomitant]
     Active Substance: PYRIDOXINE HYDROCHLORIDE
  12. LIPITOR [Concomitant]
     Active Substance: ATORVASTATIN CALCIUM
  13. COLACE [Concomitant]
     Active Substance: DOCUSATE SODIUM
  14. AUBAGIO [Suspect]
     Active Substance: TERIFLUNOMIDE
  15. RENAVIT [Concomitant]
  16. LOPRESSOR [Concomitant]
     Active Substance: METOPROLOL TARTRATE
  17. VITAMIN D3 [Concomitant]
     Active Substance: CHOLECALCIFEROL
  18. ACTONEL [Concomitant]
     Active Substance: RISEDRONATE SODIUM
  19. XALATAN [Concomitant]
     Active Substance: LATANOPROST

REACTIONS (1)
  - Headache [Unknown]
